FAERS Safety Report 7917778-2 (Version None)
Quarter: 2011Q4

REPORT INFORMATION
  Report Type: 
  Country: None (occurrence: None)
  Receive Date: 20111116
  Receipt Date: 20111107
  Transmission Date: 20120403
  Serious: Yes (Death, Hospitalization)
  Sender: FDA-Public Use
  Company Number: US-ELI_LILLY_AND_COMPANY-US201111002683

PATIENT
  Sex: Male
  Weight: 67.4 kg

DRUGS (15)
  1. OMEPRAZOLE [Concomitant]
     Indication: GASTROOESOPHAGEAL REFLUX DISEASE
     Dosage: UNK
     Dates: start: 20111025
  2. PREDNISONE [Concomitant]
     Indication: ARTHRITIS
     Dosage: UNK
     Dates: start: 20010101
  3. DEXAMETHASONE [Concomitant]
     Indication: PREMEDICATION
  4. PANCRELIPASE [Concomitant]
     Indication: SUPPLEMENTATION THERAPY
     Dosage: UNK
     Dates: start: 20100201
  5. TASISULAM SODIUM [Suspect]
     Indication: OVARIAN CANCER
     Dosage: UNK
     Dates: start: 20111103
  6. DIAZEPAM [Concomitant]
     Indication: ANXIETY
     Dosage: 5 MG, BID
     Dates: start: 19700101
  7. OXYCODONE HCL [Concomitant]
     Indication: PAIN
     Dosage: 20 MG, BID
     Dates: start: 20100201
  8. CALCIUM ACETATE [Concomitant]
     Indication: SUPPLEMENTATION THERAPY
     Dosage: UNK
     Dates: start: 19980101
  9. INSULIN LISPRO [Concomitant]
     Indication: DIABETES MELLITUS
     Dosage: UNK
     Dates: start: 20030201
  10. MULTI-VITAMIN [Concomitant]
     Indication: SUPPLEMENTATION THERAPY
  11. CYANOCOBALAMIN [Concomitant]
     Indication: SUPPLEMENTATION THERAPY
  12. PEMETREXED [Suspect]
     Indication: OVARIAN CANCER
     Dosage: UNK
     Dates: start: 20111103
  13. LYRICA [Concomitant]
     Indication: NEUROPATHY PERIPHERAL
     Dosage: UNK
     Dates: start: 20110501
  14. FOLIC ACID [Concomitant]
     Indication: PREMEDICATION
  15. VYTORIN [Concomitant]
     Indication: BLOOD CHOLESTEROL
     Dosage: UNK
     Dates: start: 20010101

REACTIONS (2)
  - RENAL FAILURE [None]
  - HEPATIC FAILURE [None]
